FAERS Safety Report 6145146-5 (Version None)
Quarter: 2009Q2

REPORT INFORMATION
  Report Type: 
  Country: None (occurrence: None)
  Receive Date: 20090406
  Receipt Date: 20090325
  Transmission Date: 20091009
  Serious: Yes (Hospitalization)
  Sender: FDA-Public Use
  Company Number: TR-ELI_LILLY_AND_COMPANY-TR200903007401

PATIENT
  Age: 63 Year
  Sex: Female

DRUGS (5)
  1. HUMULIN N [Suspect]
     Indication: DIABETES MELLITUS
     Dosage: 14 U, DAILY (1/D) (10 U IN THE MORNING AND 4 U IN THE EVENING)
     Route: 058
     Dates: start: 20080327
  2. HUMULIN N [Suspect]
     Dosage: 10 U, DAILY (1/D)
     Route: 058
  3. BELOC /00376903/ [Concomitant]
     Dosage: 50 MG, DAILY (1/D)
     Route: 065
  4. VASTAREL [Concomitant]
     Dosage: UNK, UNKNOWN
     Route: 065
  5. CORASPIN [Concomitant]
     Indication: CARDIAC DISORDER
     Dosage: 300 MG, DAILY (1/D)
     Route: 065

REACTIONS (2)
  - BLOOD GLUCOSE DECREASED [None]
  - CARDIAC DISORDER [None]
